FAERS Safety Report 21438192 (Version 2)
Quarter: 2022Q4

REPORT INFORMATION
  Report Type: Spontaneous
  Country: US (occurrence: US)
  Receive Date: 20221011
  Receipt Date: 20221110
  Transmission Date: 20230112
  Serious: Yes (Hospitalization, Other)
  Sender: FDA-Public Use
  Company Number: US-SA-SAC20220525002104

PATIENT
  Sex: Female

DRUGS (2)
  1. AUBAGIO [Suspect]
     Active Substance: TERIFLUNOMIDE
     Indication: Multiple sclerosis
     Dosage: 14 MG, QD
     Route: 048
     Dates: start: 20200612
  2. AUBAGIO [Suspect]
     Active Substance: TERIFLUNOMIDE
     Indication: Pulmonary arterial hypertension

REACTIONS (5)
  - Cardiac failure congestive [Unknown]
  - Lung disorder [Not Recovered/Not Resolved]
  - Hospitalisation [Not Recovered/Not Resolved]
  - Infection [Unknown]
  - Product use in unapproved indication [Unknown]
